FAERS Safety Report 7429115-0 (Version None)
Quarter: 2011Q2

REPORT INFORMATION
  Report Type: 
  Country: None (occurrence: None)
  Receive Date: 20110421
  Receipt Date: 20110418
  Transmission Date: 20111010
  Serious: Yes (Other)
  Sender: FDA-Public Use
  Company Number: PHHY2010US86579

PATIENT
  Sex: Female
  Weight: 49 kg

DRUGS (7)
  1. COPAXONE [Concomitant]
     Dosage: 20 MG, UNK
     Route: 058
  2. KLONOPIN [Concomitant]
     Dosage: 0.5 MG, PRN
  3. GILENYA [Suspect]
     Indication: MULTIPLE SCLEROSIS
     Dosage: 0.5 MG, QD
     Route: 048
     Dates: start: 20101215
  4. GILENYA [Suspect]
     Dosage: 10 MG, BID
     Route: 048
     Dates: start: 20101216, end: 20101218
  5. FAMVIR [Concomitant]
     Dosage: 250 MG, ONE AT AM AND ONE AT HS
  6. ALESSE [Concomitant]
     Dosage: UNK
     Route: 048
  7. PROVIGIL [Concomitant]
     Dosage: 200 MG, UNK

REACTIONS (7)
  - CHEST DISCOMFORT [None]
  - CHEST PAIN [None]
  - EYE PAIN [None]
  - NAUSEA [None]
  - OVERDOSE [None]
  - HEADACHE [None]
  - DYSPNOEA [None]
